FAERS Safety Report 10055182 (Version 2)
Quarter: 2014Q2

REPORT INFORMATION
  Report Type: Spontaneous
  Country: JP (occurrence: JP)
  Receive Date: 20140402
  Receipt Date: 20140415
  Transmission Date: 20141212
  Serious: Yes (Other)
  Sender: FDA-Public Use
  Company Number: JP-UCBSA-116437

PATIENT
  Sex: 0

DRUGS (2)
  1. E KEPPRA [Suspect]
     Route: 048
  2. ABILIFY [Concomitant]
     Route: 048

REACTIONS (1)
  - Dermatitis [Unknown]
